FAERS Safety Report 8831205 (Version 2)
Quarter: 2012Q4

REPORT INFORMATION
  Report Type: Report from Study
  Country: US (occurrence: US)
  Receive Date: 20121008
  Receipt Date: 20121023
  Transmission Date: 20130627
  Serious: Yes (Other)
  Sender: FDA-Public Use
  Company Number: US-ASTELLAS-2012US009761

PATIENT
  Age: 84 Year
  Sex: Female
  Weight: 73 kg

DRUGS (2)
  1. ERLOTINIB TABLET [Suspect]
     Indication: NON-SMALL CELL LUNG CANCER STAGE IV
     Dosage: 100 mg, UID/QD
     Route: 048
     Dates: start: 20120914, end: 20120926
  2. AZD6244 HYDROGEN SULFATE [Suspect]
     Indication: NON-SMALL CELL LUNG CANCER STAGE IV
     Dosage: 150 mg, UID/QD
     Route: 048
     Dates: start: 20120914, end: 20120927

REACTIONS (5)
  - Incorrect dose administered [Unknown]
  - Hypoalbuminaemia [Recovering/Resolving]
  - Hyponatraemia [Recovered/Resolved]
  - Blood bilirubin increased [Recovered/Resolved]
  - Rash maculo-papular [Not Recovered/Not Resolved]
